FAERS Safety Report 6960160-5 (Version None)
Quarter: 2010Q3

REPORT INFORMATION
  Report Type: 
  Country: None (occurrence: None)
  Receive Date: 20100901
  Receipt Date: 20100823
  Transmission Date: 20110219
  Serious: Yes (Hospitalization)
  Sender: FDA-Public Use
  Company Number: FR-ASTRAZENECA-2010SE39754

PATIENT
  Age: 20119 Day
  Sex: Female
  Weight: 90 kg

DRUGS (6)
  1. NEXIUM [Suspect]
     Route: 048
     Dates: start: 20100201, end: 20100722
  2. MORPHINE [Suspect]
     Route: 065
     Dates: start: 20100715, end: 20100715
  3. SECTRAL [Suspect]
     Route: 048
     Dates: start: 20100712, end: 20100721
  4. LOVENOX [Suspect]
     Route: 058
     Dates: start: 20100714, end: 20100723
  5. TRAMADOL HCL [Suspect]
     Route: 048
     Dates: start: 20100718, end: 20100722
  6. PRETERAX [Concomitant]
     Indication: HYPERTENSION
     Route: 048
     Dates: start: 20070101

REACTIONS (2)
  - ACUTE GENERALISED EXANTHEMATOUS PUSTULOSIS [None]
  - TOXIC SKIN ERUPTION [None]
